FAERS Safety Report 7263778-8 (Version None)
Quarter: 2011Q1

REPORT INFORMATION
  Report Type: 
  Country: None (occurrence: None)
  Receive Date: 20110120
  Receipt Date: 20110104
  Transmission Date: 20110831
  Serious: Yes (Other)
  Sender: FDA-Public Use
  Company Number: ACO_20987_2010

PATIENT
  Age: 58 Year
  Sex: Female

DRUGS (7)
  1. AMANTADINE HCL [Concomitant]
  2. BACLOFEN [Concomitant]
  3. AMPYRA [Suspect]
     Indication: PRODUCT USED FOR UNKNOWN INDICATION
     Dosage: 10 MG, Q 12 HRS, ORAL
     Route: 048
     Dates: start: 20101122, end: 20101127
  4. AMPYRA [Suspect]
     Indication: PRODUCT USED FOR UNKNOWN INDICATION
     Dosage: 10 MG, Q 12 HRS, ORAL
     Route: 048
     Dates: start: 20100520, end: 20101101
  5. ZOLOFT (SERTRALINE HYODRHCLORIDE0 [Concomitant]
  6. MULTI-VITA (VITAMINS NOS) [Concomitant]
  7. CYANOCOBALAMIN [Concomitant]

REACTIONS (5)
  - URINARY TRACT INFECTION [None]
  - TINNITUS [None]
  - TONGUE BITING [None]
  - CONVULSION [None]
  - TREATMENT NONCOMPLIANCE [None]
